FAERS Safety Report 25733880 (Version 3)
Quarter: 2025Q4

REPORT INFORMATION
  Report Type: Spontaneous
  Country: EU (occurrence: EU)
  Receive Date: 20250828
  Receipt Date: 20251025
  Transmission Date: 20260118
  Serious: Yes (Death, Life-Threatening, Other)
  Sender: MSN LABORATORIES PRIVATE LIMITED
  Company Number: EU-MLMSERVICE-20250729-PI591856-00119-1

PATIENT

DRUGS (8)
  1. PREGABALIN [Suspect]
     Active Substance: PREGABALIN
     Indication: Product used for unknown indication
     Route: 065
  2. ALPRAZOLAM [Suspect]
     Active Substance: ALPRAZOLAM
     Indication: Product used for unknown indication
     Route: 065
  3. DIAZEPAM [Suspect]
     Active Substance: DIAZEPAM
     Indication: Product used for unknown indication
     Dosage: LARGE AMOUNT OF PRESCRIBED DIAZEPAM
     Route: 065
  4. NITRAZEPAM [Suspect]
     Active Substance: NITRAZEPAM
     Indication: Product used for unknown indication
     Route: 065
  5. OXYCODONE HYDROCHLORIDE [Suspect]
     Active Substance: OXYCODONE HYDROCHLORIDE
     Indication: Product used for unknown indication
     Route: 065
  6. CIPROFLOXACIN [Concomitant]
     Active Substance: CIPROFLOXACIN
     Indication: Product used for unknown indication
     Route: 065
  7. OLANZAPINE [Concomitant]
     Active Substance: OLANZAPINE
     Indication: Product used for unknown indication
     Route: 065
  8. SILDENAFIL [Concomitant]
     Active Substance: SILDENAFIL
     Indication: Product used for unknown indication
     Route: 065

REACTIONS (9)
  - Substance abuse [Fatal]
  - Respiratory depression [Fatal]
  - Drug interaction [Fatal]
  - Counterfeit product administered [Fatal]
  - Potentiating drug interaction [Fatal]
  - Toxicity to various agents [Fatal]
  - Loss of consciousness [Unknown]
  - Unresponsive to stimuli [Unknown]
  - Cyanosis [Unknown]

NARRATIVE: CASE EVENT DATE: 20210101
